FAERS Safety Report 8447865-4 (Version None)
Quarter: 2012Q2

REPORT INFORMATION
  Report Type: 
  Country: None (occurrence: None)
  Receive Date: 20120612
  Receipt Date: 20120529
  Transmission Date: 20120825
  Serious: Yes (Hospitalization)
  Sender: FDA-Public Use
  Company Number: USA/USA/12/0024557

PATIENT
  Age: 57 Year
  Sex: Female

DRUGS (4)
  1. TACROLIMUS [Suspect]
     Indication: IMMUNOSUPPRESSANT DRUG THERAPY
     Dosage: 1 MG IN THE MORNING AND 1.5 MG IN THE EVENING.
  2. TACROLIMUS [Suspect]
     Indication: PROPHYLAXIS
     Dosage: 1 MG IN THE MORNING AND 1.5 MG IN THE EVENING.
  3. PREDNISONE TAB [Concomitant]
  4. MYCOPHENOLATE MOFETIL [Concomitant]

REACTIONS (18)
  - NEGATIVISM [None]
  - BLOOD CREATININE INCREASED [None]
  - BLOOD MAGNESIUM DECREASED [None]
  - TREATMENT FAILURE [None]
  - NEUROTOXICITY [None]
  - CATATONIA [None]
  - ELECTROENCEPHALOGRAM ABNORMAL [None]
  - IMMOBILE [None]
  - RENAL IMPAIRMENT [None]
  - CONFUSIONAL STATE [None]
  - HYPOAESTHESIA [None]
  - MUTISM [None]
  - LACUNAR INFARCTION [None]
  - SYSTOLIC HYPERTENSION [None]
  - HEADACHE [None]
  - IMMUNOSUPPRESSANT DRUG LEVEL DECREASED [None]
  - IMMUNOSUPPRESSANT DRUG LEVEL INCREASED [None]
  - NEPHROPATHY TOXIC [None]
